FAERS Safety Report 4354919-0 (Version None)
Quarter: 2004Q2

REPORT INFORMATION
  Report Type: 
  Country: None (occurrence: None)
  Receive Date: 20040510
  Receipt Date: 20040319
  Transmission Date: 20050107
  Serious: Yes (Other)
  Sender: FDA-Public Use
  Company Number: PHNU2004DE01284

PATIENT
  Age: 62 Year
  Sex: Male

DRUGS (8)
  1. TEGRETOL [Suspect]
     Indication: PAIN
     Dosage: 30ML/DAY
     Route: 048
     Dates: start: 20031205, end: 20031209
  2. DIPIDOLOR [Concomitant]
     Indication: PAIN
     Dosage: 60MG/DAY
     Route: 042
     Dates: start: 20031125
  3. NOVALGIN [Concomitant]
     Indication: PAIN
     Dosage: 4G/DAY
     Route: 042
     Dates: start: 20031125
  4. NEURONTIN [Concomitant]
     Indication: PAIN
     Dosage: 200MG/DAY
     Route: 048
     Dates: start: 20031208
  5. METOPROLOL SUCCINATE [Concomitant]
     Indication: HYPERTENSION
     Dosage: 3DF/DAY
     Route: 048
     Dates: start: 20031201
  6. L-THYROXIN ^HENNING BERLIN^ [Concomitant]
     Dosage: 150NG/DAY
     Route: 048
     Dates: start: 20031111
  7. PANTOZOL [Concomitant]
     Indication: PROPHYLAXIS
     Dosage: 1DF/DAY
     Route: 048
     Dates: start: 20031023
  8. LORAZEPAM [Concomitant]
     Dosage: 1DF/DAY
     Route: 048
     Dates: start: 20031211

REACTIONS (14)
  - AGGRESSION [None]
  - DELUSIONAL DISORDER, PERSECUTORY TYPE [None]
  - GASTRIC HAEMORRHAGE [None]
  - GASTRIC ULCER [None]
  - GASTRIC ULCER SURGERY [None]
  - HALLUCINATION [None]
  - LAPAROTOMY [None]
  - LYMPHOPENIA [None]
  - MAJOR DEPRESSION [None]
  - NEUTROPENIA [None]
  - NORMOCHROMIC NORMOCYTIC ANAEMIA [None]
  - PANCYTOPENIA [None]
  - PLATELET COUNT DECREASED [None]
  - WHITE BLOOD CELL COUNT DECREASED [None]
